FAERS Safety Report 20612456 (Version 1)
Quarter: 2022Q1

REPORT INFORMATION
  Report Type: Report from Study
  Country: US (occurrence: US)
  Receive Date: 20220318
  Receipt Date: 20220318
  Transmission Date: 20220423
  Serious: Yes (Hospitalization)
  Sender: FDA-Public Use
  Company Number: US-IGSA-BIG0018114

PATIENT
  Sex: Male

DRUGS (2)
  1. GAMUNEX-C [Suspect]
     Active Substance: HUMAN IMMUNOGLOBULIN G
     Indication: Stiff person syndrome
     Dosage: 20 GRAM, Q.2WK.
     Route: 042
     Dates: start: 20220301
  2. GAMUNEX-C [Suspect]
     Active Substance: HUMAN IMMUNOGLOBULIN G
     Indication: Intentional product use issue
     Dosage: 5 GRAM, Q.2WK.
     Route: 042
     Dates: start: 20220301

REACTIONS (2)
  - Hyponatraemia [Unknown]
  - Abdominal pain [Unknown]
